FAERS Safety Report 6649576-4 (Version None)
Quarter: 2010Q1

REPORT INFORMATION
  Report Type: 
  Country: None (occurrence: None)
  Receive Date: 20100324
  Receipt Date: 20100315
  Transmission Date: 20100710
  Serious: Yes (Death)
  Sender: FDA-Public Use
  Company Number: US-MERCK-1003USA02171

PATIENT
  Age: 63 Year
  Sex: Male
  Weight: 80 kg

DRUGS (9)
  1. FOSAMAX [Suspect]
     Indication: OSTEOPOROSIS
     Route: 048
     Dates: start: 20000317, end: 20010523
  2. FOSAMAX [Suspect]
     Route: 048
     Dates: start: 20010524, end: 20040301
  3. ASPIRIN [Concomitant]
     Route: 065
  4. SYNTHROID [Concomitant]
     Route: 065
  5. TOPROL-XL [Concomitant]
     Route: 065
  6. LIPITOR [Concomitant]
     Route: 065
  7. OS-CAL [Concomitant]
     Route: 065
  8. DOXYCYCLINE [Concomitant]
     Route: 065
  9. WELCHOL [Concomitant]
     Route: 065

REACTIONS (1)
  - OESOPHAGEAL ADENOCARCINOMA [None]
